FAERS Safety Report 7620596-6 (Version None)
Quarter: 2011Q3

REPORT INFORMATION
  Report Type: 
  Country: None (occurrence: None)
  Receive Date: 20110719
  Receipt Date: 20110704
  Transmission Date: 20111222
  Serious: Yes (Hospitalization, Disabling, Other)
  Sender: FDA-Public Use
  Company Number: AR-MEDIMMUNE-MEDI-0013283

PATIENT
  Sex: Male
  Weight: 2.7 kg

DRUGS (5)
  1. SYNAGIS [Suspect]
     Route: 030
     Dates: start: 20110601, end: 20110601
  2. RETINOL [Concomitant]
     Dates: start: 20110430
  3. FERROUS SULFATE TAB [Concomitant]
     Dates: start: 20110517, end: 20110615
  4. ASCORBIC ACID [Concomitant]
     Dates: start: 20110430
  5. ERGOCALCIFEROL [Concomitant]
     Dates: start: 20110430, end: 20110615

REACTIONS (2)
  - FEEDING DISORDER [None]
  - BRONCHIOLITIS [None]
